FAERS Safety Report 20804621 (Version 1)
Quarter: 2022Q2

REPORT INFORMATION
  Report Type: Spontaneous
  Country: US (occurrence: US)
  Receive Date: 20220509
  Receipt Date: 20220509
  Transmission Date: 20220721
  Serious: No
  Sender: FDA-Public Use
  Company Number: US-Blueprint Medicines Corporation-54

PATIENT
  Sex: Female

DRUGS (1)
  1. AYVAKIT [Suspect]
     Active Substance: AVAPRITINIB
     Indication: Systemic mastocytosis
     Dosage: 50MG DAILY
     Route: 048
     Dates: start: 20220224

REACTIONS (4)
  - Weight increased [Unknown]
  - Periorbital swelling [Unknown]
  - Platelet count decreased [Unknown]
  - White blood cell count decreased [Unknown]
